FAERS Safety Report 5487808-9 (Version None)
Quarter: 2007Q4

REPORT INFORMATION
  Report Type: 
  Country: None (occurrence: None)
  Receive Date: 20071017
  Receipt Date: 20071004
  Transmission Date: 20080405
  Serious: Yes (Other)
  Sender: FDA-Public Use
  Company Number: US-BAYER-200713245BCC

PATIENT
  Age: 62 Year
  Sex: Female
  Weight: 79 kg

DRUGS (11)
  1. ONE A DAY ALL ENERGY [Suspect]
     Indication: DRUG USE FOR UNKNOWN INDICATION
     Route: 048
     Dates: start: 20071001, end: 20071003
  2. ASPIRIN [Suspect]
     Indication: DRUG USE FOR UNKNOWN INDICATION
     Dosage: TOTAL DAILY DOSE: 81 MG  UNIT DOSE: 81 MG
     Route: 048
     Dates: start: 20071001
  3. FORADIL [Concomitant]
  4. SPIRIVA [Concomitant]
  5. SEREVENT [Concomitant]
  6. ALBUTEROL [Concomitant]
  7. CALCIUM [Concomitant]
     Route: 048
  8. METFORMIN [Concomitant]
  9. SIMVASTATIN [Concomitant]
  10. GLIMEPIRIDE [Concomitant]
  11. LISINOPRIL [Concomitant]

REACTIONS (2)
  - BLOOD GLUCOSE DECREASED [None]
  - BLOOD GLUCOSE FLUCTUATION [None]
